FAERS Safety Report 15339192 (Version 1)
Quarter: 2018Q3

REPORT INFORMATION
  Report Type: Spontaneous
  Country: DE (occurrence: DE)
  Receive Date: 20180831
  Receipt Date: 20180831
  Transmission Date: 20181010
  Serious: Yes (Other)
  Sender: FDA-Public Use
  Company Number: DE-ASTELLAS-2018US038304

PATIENT
  Sex: Male

DRUGS (1)
  1. XTANDI [Suspect]
     Active Substance: ENZALUTAMIDE
     Indication: PRODUCT USED FOR UNKNOWN INDICATION
     Dosage: 160 MG, ONCE DAILY (40 MG 4 X 1)
     Route: 065

REACTIONS (3)
  - Ileus [Not Recovered/Not Resolved]
  - Malignant neoplasm progression [Unknown]
  - Dysphagia [Unknown]

NARRATIVE: CASE EVENT DATE: 201807
